FAERS Safety Report 25763721 (Version 1)
Quarter: 2025Q3

REPORT INFORMATION
  Report Type: Spontaneous
  Country: US (occurrence: US)
  Receive Date: 20250905
  Receipt Date: 20250905
  Transmission Date: 20251020
  Serious: No
  Sender: DOMPE FARMACEUTICI
  Company Number: US-FARMAPROD-202410-3776

PATIENT
  Age: 46 Year
  Sex: Male

DRUGS (6)
  1. OXERVATE [Suspect]
     Active Substance: CENEGERMIN-BKBJ
     Indication: Neurotrophic keratopathy
     Route: 047
     Dates: start: 20241004, end: 20241127
  2. OXERVATE [Suspect]
     Active Substance: CENEGERMIN-BKBJ
     Route: 047
     Dates: start: 20250220
  3. OXERVATE [Suspect]
     Active Substance: CENEGERMIN-BKBJ
  4. CEQUA [Concomitant]
     Active Substance: CYCLOSPORINE
  5. CROMOLYN [Concomitant]
     Active Substance: CROMOLYN
  6. REFRESH CLASSIC [Concomitant]
     Active Substance: POLYVINYL ALCOHOL\POVIDONE

REACTIONS (7)
  - Epistaxis [Recovered/Resolved with Sequelae]
  - Rhinalgia [Recovered/Resolved]
  - Migraine [Unknown]
  - Eye pain [Not Recovered/Not Resolved]
  - Mucosal inflammation [Unknown]
  - Treatment noncompliance [Unknown]
  - Photophobia [Unknown]

NARRATIVE: CASE EVENT DATE: 20241004
